FAERS Safety Report 9553765 (Version 1)
Quarter: 2013Q3

REPORT INFORMATION
  Report Type: Spontaneous
  Country: US (occurrence: US)
  Receive Date: 20130925
  Receipt Date: 20130925
  Transmission Date: 20140515
  Serious: No
  Sender: FDA-Public Use
  Company Number: US-FOUGERA-2012FO001395

PATIENT
  Sex: Male

DRUGS (1)
  1. LIDOCAINE AND; PRILOCAINE [Suspect]
     Indication: ANALGESIC THERAPY
     Dosage: A THICK LAYER APPLIED AND?COVERED WITH SARAN WRAP PRIOR TO?DIALYSIS
     Route: 061
     Dates: start: 2012

REACTIONS (3)
  - Inappropriate schedule of drug administration [Unknown]
  - Therapeutic response decreased [Not Recovered/Not Resolved]
  - Application site pruritus [Unknown]
